FAERS Safety Report 5691303-1 (Version None)
Quarter: 2008Q1

REPORT INFORMATION
  Report Type: 
  Country: None (occurrence: None)
  Receive Date: 20080331
  Receipt Date: 20080314
  Transmission Date: 20080703
  Serious: Yes (Hospitalization)
  Sender: FDA-Public Use
  Company Number: 8030871

PATIENT
  Age: 48 Year
  Sex: Female

DRUGS (3)
  1. KEPPRA [Suspect]
     Dosage: 500 MG 3/D PO
     Route: 048
     Dates: start: 20071201
  2. GABAPENTIN [Concomitant]
  3. FENTANYL TRANSDERMAL SYSTEM [Concomitant]

REACTIONS (3)
  - COELIAC DISEASE [None]
  - GASTRIC DISORDER [None]
  - WEIGHT DECREASED [None]
